APPROVED DRUG PRODUCT: LOXAPINE SUCCINATE
Active Ingredient: LOXAPINE SUCCINATE
Strength: EQ 10MG BASE
Dosage Form/Route: CAPSULE;ORAL
Application: A076868 | Product #002 | TE Code: AB
Applicant: ELITE LABORATORIES INC
Approved: Aug 4, 2005 | RLD: No | RS: No | Type: RX